FAERS Safety Report 14726274 (Version 2)
Quarter: 2018Q2

REPORT INFORMATION
  Report Type: Spontaneous
  Country: US (occurrence: US)
  Receive Date: 20180406
  Receipt Date: 20180504
  Transmission Date: 20180711
  Serious: No
  Sender: FDA-Public Use
  Company Number: US-ASTRAZENECA-2018SE31834

PATIENT
  Age: 22359 Day
  Sex: Male
  Weight: 95.3 kg

DRUGS (3)
  1. PULMICORT FLEXHALER [Suspect]
     Active Substance: BUDESONIDE
     Indication: ASTHMA
     Route: 055
     Dates: end: 20180307
  2. IBUPROFEN. [Concomitant]
     Active Substance: IBUPROFEN
     Indication: KNEE OPERATION
     Route: 048
  3. PULMICORT FLEXHALER [Suspect]
     Active Substance: BUDESONIDE
     Indication: ASTHMA
     Route: 055

REACTIONS (6)
  - Retching [Unknown]
  - Dysgeusia [Unknown]
  - Product quality issue [Unknown]
  - Influenza [Unknown]
  - Vomiting [Unknown]
  - Intentional product misuse [Unknown]

NARRATIVE: CASE EVENT DATE: 20180301
